FAERS Safety Report 9163310 (Version 1)
Quarter: 2013Q1

REPORT INFORMATION
  Report Type: Report from Study
  Country: US (occurrence: US)
  Receive Date: 20130314
  Receipt Date: 20130314
  Transmission Date: 20140127
  Serious: Yes (Hospitalization)
  Sender: FDA-Public Use
  Company Number: US-GLAXOSMITHKLINE-Z0018751A

PATIENT
  Age: 73 Year
  Sex: Male
  Weight: 104.3 kg

DRUGS (2)
  1. BLINDED TRIAL MEDICATION [Suspect]
     Indication: ACUTE CORONARY SYNDROME
     Route: 048
     Dates: start: 20110802
  2. CLINDAMYCIN [Suspect]
     Indication: INFECTION
     Dosage: 300MG FOUR TIMES PER DAY
     Route: 048
     Dates: start: 20121209, end: 20121212

REACTIONS (1)
  - Drug hypersensitivity [Recovered/Resolved]
